FAERS Safety Report 4350996-1 (Version None)
Quarter: 2004Q2

REPORT INFORMATION
  Report Type: 
  Country: None (occurrence: None)
  Receive Date: 20040428
  Receipt Date: 20030402
  Transmission Date: 20050107
  Serious: Yes (Death, Hospitalization)
  Sender: FDA-Public Use
  Company Number: 335365

PATIENT
  Age: 59 Year
  Sex: Male

DRUGS (5)
  1. NAPROXEN [Suspect]
     Dosage: 500 MG 2 PER DAY ORAL
     Route: 048
     Dates: start: 20030117, end: 20030225
  2. NEURONTIN [Concomitant]
  3. PREVACID [Concomitant]
  4. CORITCOSTEROID (CORTICOSTEROID) [Concomitant]
  5. EPIDURAL STEROID (EPIDURAL STEROID) [Concomitant]

REACTIONS (4)
  - ADVERSE EVENT [None]
  - CHROMATURIA [None]
  - HEPATIC NECROSIS [None]
  - JAUNDICE [None]
